FAERS Safety Report 11496283 (Version 1)
Quarter: 2015Q3

REPORT INFORMATION
  Report Type: Spontaneous
  Country: CH (occurrence: CH)
  Receive Date: 20150911
  Receipt Date: 20150911
  Transmission Date: 20151125
  Serious: Yes (Life-Threatening)
  Sender: FDA-Public Use
  Company Number: CH-PFIZER INC-2015302804

PATIENT
  Age: 30 Year
  Sex: Male

DRUGS (5)
  1. TEMESTA EXPIDET [Suspect]
     Active Substance: LORAZEPAM
     Dosage: 2.5 MG, UNK
     Route: 048
  2. TRUXAL [Concomitant]
     Active Substance: CHLORPROTHIXENE
     Dosage: 50 MG, 2X/DAY
     Route: 048
  3. ABILIFY [Suspect]
     Active Substance: ARIPIPRAZOLE
     Dosage: 10 MG, 1X/DAY
     Route: 048
     Dates: start: 2015
  4. NEURONTIN [Suspect]
     Active Substance: GABAPENTIN
     Dosage: 400 MG, 4X/DAY
     Route: 048
  5. CIPRALEX [Suspect]
     Active Substance: ESCITALOPRAM OXALATE
     Dosage: 30 MG, 1X/DAY
     Route: 048

REACTIONS (1)
  - Suicide attempt [Recovered/Resolved]

NARRATIVE: CASE EVENT DATE: 2015
